FAERS Safety Report 7001530-9 (Version None)
Quarter: 2010Q3

REPORT INFORMATION
  Report Type: 
  Country: None (occurrence: None)
  Receive Date: 20100916
  Receipt Date: 20100901
  Transmission Date: 20110219
  Serious: Yes (Other)
  Sender: FDA-Public Use
  Company Number: AUR-APL-2010-02164

PATIENT
  Age: 76 Year
  Sex: Female
  Weight: 68 kg

DRUGS (3)
  1. FLUCONAZOLE [Suspect]
     Indication: MENINGITIS COCCIDIOIDES
     Dosage: 1200MG, DAILY, ORAL, 2YRS-ONG (DOSE REDUCED)
     Route: 048
  2. FLUCONAZOLE [Suspect]
     Indication: MENINGITIS COCCIDIOIDES
     Dosage: 1000MG, DAILY, ORAL,   1YR-ONG (DOSE REDUCED)
     Route: 048
  3. FLUCONAZOLE [Suspect]
     Indication: MENINGITIS COCCIDIOIDES
     Dosage: 400MG, DAILY, ORAL
     Route: 048

REACTIONS (7)
  - DECREASED APPETITE [None]
  - DRUG TOXICITY [None]
  - FATIGUE [None]
  - HEADACHE [None]
  - MACULAR OEDEMA [None]
  - RETINAL HAEMORRHAGE [None]
  - RETINAL VEIN OCCLUSION [None]
